FAERS Safety Report 7050301-6 (Version None)
Quarter: 2010Q4

REPORT INFORMATION
  Report Type: 
  Country: None (occurrence: None)
  Receive Date: 20101018
  Receipt Date: 20101008
  Transmission Date: 20110411
  Serious: Yes (Other)
  Sender: FDA-Public Use
  Company Number: GXKR2010FR11514

PATIENT
  Sex: Male

DRUGS (3)
  1. TRAMADOL HCL [Suspect]
     Indication: PAIN
     Dosage: 100 MG, BID
     Route: 048
     Dates: start: 20010101
  2. ATENOLOL [Concomitant]
  3. TETRAZEPAM [Concomitant]

REACTIONS (8)
  - DRUG DEPENDENCE [None]
  - DRUG WITHDRAWAL SYNDROME [None]
  - FATIGUE [None]
  - FEELING JITTERY [None]
  - MOOD SWINGS [None]
  - MUSCULAR WEAKNESS [None]
  - TREMOR [None]
  - WEIGHT DECREASED [None]
